FAERS Safety Report 9721925 (Version 4)
Quarter: 2014Q1

REPORT INFORMATION
  Report Type: Report from Study
  Country: GB (occurrence: GB)
  Receive Date: 20131202
  Receipt Date: 20140213
  Transmission Date: 20141002
  Serious: Yes (Other)
  Sender: FDA-Public Use
  Company Number: GB-ROCHE-1309893

PATIENT
  Age: 81 Year
  Sex: Male

DRUGS (2)
  1. RANIBIZUMAB [Suspect]
     Indication: AGE-RELATED MACULAR DEGENERATION
     Route: 050
     Dates: start: 20110809
  2. RANIBIZUMAB [Suspect]
     Route: 050
     Dates: start: 20130924

REACTIONS (8)
  - Toxoplasmosis [Unknown]
  - Chest pain [Recovering/Resolving]
  - Palpitations [Recovering/Resolving]
  - Dyspnoea [Recovering/Resolving]
  - Age-related macular degeneration [Not Recovered/Not Resolved]
  - Atrial fibrillation [Unknown]
  - Troponin I increased [Recovered/Resolved with Sequelae]
  - Fibrin D dimer increased [Recovering/Resolving]
